FAERS Safety Report 11684235 (Version 3)
Quarter: 2016Q1

REPORT INFORMATION
  Report Type: Spontaneous
  Country: US (occurrence: US)
  Receive Date: 20151029
  Receipt Date: 20160106
  Transmission Date: 20160525
  Serious: No
  Sender: FDA-Public Use
  Company Number: US-GILEAD-2015-0179637

PATIENT
  Age: 59 Year
  Sex: Male

DRUGS (2)
  1. ZYDELIG [Suspect]
     Active Substance: IDELALISIB
     Indication: CHRONIC LYMPHOCYTIC LEUKAEMIA
     Dosage: UNK
     Dates: end: 2015
  2. ZYDELIG [Suspect]
     Active Substance: IDELALISIB
     Indication: CHROMOSOMAL DELETION
     Dosage: 100 MG, BID
     Route: 048
     Dates: start: 201510

REACTIONS (1)
  - Diarrhoea [Recovered/Resolved]
